FAERS Safety Report 17855348 (Version 3)
Quarter: 2021Q2

REPORT INFORMATION
  Report Type: Report from Study
  Country: CA (occurrence: CA)
  Receive Date: 20200603
  Receipt Date: 20210506
  Transmission Date: 20210717
  Serious: Yes (Disabling, Other)
  Sender: FDA-Public Use
  Company Number: CA-SA-2018SA052344

PATIENT
  Age: 47 Year
  Sex: Female

DRUGS (9)
  1. METHYLPREDNISOLONE. [Concomitant]
     Active Substance: METHYLPREDNISOLONE
     Indication: PREMEDICATION
     Dosage: 1 G, UNK
     Route: 042
     Dates: start: 20180219, end: 20180221
  2. FAMPYRA [Concomitant]
     Active Substance: DALFAMPRIDINE
  3. REACTINE [CETIRIZINE HYDROCHLORIDE] [Concomitant]
     Active Substance: CETIRIZINE HYDROCHLORIDE
     Indication: PREMEDICATION
     Dosage: 10 MG, UNK
     Route: 048
     Dates: start: 20180219, end: 20180221
  4. PARACETAMOL [Concomitant]
     Active Substance: ACETAMINOPHEN
     Indication: PREMEDICATION
     Dosage: UNK, UNK
     Route: 048
     Dates: start: 20180219, end: 20180221
  5. ACICLOVIR [Concomitant]
     Active Substance: ACYCLOVIR
     Indication: PREMEDICATION
     Dosage: 200 MG,BID
     Route: 048
     Dates: start: 20180219
  6. GABAPENTIN. [Concomitant]
     Active Substance: GABAPENTIN
  7. RANITIDINE. [Concomitant]
     Active Substance: RANITIDINE
     Indication: PREMEDICATION
     Dosage: 150 MG, UNK
     Route: 048
     Dates: start: 20180219, end: 20180221
  8. NABILONE [Concomitant]
     Active Substance: NABILONE
  9. ALEMTUZUMAB [Suspect]
     Active Substance: ALEMTUZUMAB
     Indication: RELAPSING-REMITTING MULTIPLE SCLEROSIS
     Dosage: 12 MG, QD
     Route: 041
     Dates: start: 20180219, end: 20180221

REACTIONS (50)
  - Haemoglobin increased [Recovered/Resolved]
  - Red blood cell count increased [Recovered/Resolved]
  - Nasal congestion [Recovered/Resolved]
  - Lip swelling [Recovered/Resolved]
  - White blood cells urine positive [Recovered/Resolved]
  - Pruritus [Recovered/Resolved]
  - Chest discomfort [Recovered/Resolved]
  - Eye swelling [Recovering/Resolving]
  - Gait disturbance [Not Recovered/Not Resolved]
  - Chromaturia [Recovered/Resolved]
  - Tachycardia [Not Recovered/Not Resolved]
  - Vomiting [Recovered/Resolved]
  - Rash erythematous [Recovered/Resolved]
  - Haemoglobin urine present [Recovered/Resolved]
  - Productive cough [Recovering/Resolving]
  - Basedow^s disease [Recovering/Resolving]
  - Pneumonia [Recovered/Resolved]
  - Urine ketone body present [Not Recovered/Not Resolved]
  - Red blood cells urine positive [Recovered/Resolved]
  - Nausea [Recovered/Resolved]
  - Headache [Recovered/Resolved]
  - Intraocular pressure test abnormal [Recovering/Resolving]
  - Cough [Recovering/Resolving]
  - Dyspnoea [Recovered/Resolved]
  - Monocyte count increased [Recovered/Resolved]
  - Wheezing [Recovered/Resolved]
  - Flushing [Recovered/Resolved]
  - Infusion site extravasation [Recovered/Resolved]
  - Menstrual disorder [Not Recovered/Not Resolved]
  - Rash pruritic [Not Recovered/Not Resolved]
  - Multiple sclerosis relapse [Unknown]
  - Protein urine present [Recovered/Resolved]
  - Rash [Recovered/Resolved]
  - Lymphocyte count decreased [Recovered/Resolved]
  - Fatigue [Recovering/Resolving]
  - Dysstasia [Not Recovered/Not Resolved]
  - Fatigue [Not Recovered/Not Resolved]
  - Haematocrit increased [Recovered/Resolved]
  - Bone pain [Not Recovered/Not Resolved]
  - Urine abnormality [Not Recovered/Not Resolved]
  - Pyrexia [Recovered/Resolved]
  - Insomnia [Not Recovered/Not Resolved]
  - Rash [Not Recovered/Not Resolved]
  - Endocrine ophthalmopathy [Recovering/Resolving]
  - Multiple sclerosis [Not Recovered/Not Resolved]
  - Neutrophil count abnormal [Recovered/Resolved]
  - Crystal urine present [Unknown]
  - Cough [Recovered/Resolved]
  - Blood thyroid stimulating hormone decreased [Recovered/Resolved]
  - Energy increased [Not Recovered/Not Resolved]

NARRATIVE: CASE EVENT DATE: 20180219
